FAERS Safety Report 22638622 (Version 1)
Quarter: 2023Q2

REPORT INFORMATION
  Report Type: Other
  Country: CN (occurrence: CN)
  Receive Date: 20230626
  Receipt Date: 20230626
  Transmission Date: 20230721
  Serious: Yes (Hospitalization, Other)
  Sender: FDA-Public Use
  Company Number: CN-Bion-011755

PATIENT
  Age: 35 Year
  Sex: Female

DRUGS (1)
  1. IBUPROFEN [Suspect]
     Active Substance: IBUPROFEN
     Indication: Product used for unknown indication
     Dosage: 48 ORAL IBUPROFEN SUSTAINED RELEASE 300MG CAPSULES (14,400MG) TOGETHER AT ONE TIME.
     Route: 048

REACTIONS (5)
  - Duodenitis [Recovered/Resolved]
  - Hypertension [Recovered/Resolved]
  - Intentional product misuse [Unknown]
  - Gastric ulcer [Recovered/Resolved]
  - Overdose [Unknown]
